FAERS Safety Report 11706848 (Version 2)
Quarter: 2015Q4

REPORT INFORMATION
  Report Type: Report from Study
  Country: US (occurrence: US)
  Receive Date: 20151106
  Receipt Date: 20151214
  Transmission Date: 20160304
  Serious: Yes (Other)
  Sender: FDA-Public Use
  Company Number: US-SA-2015SA117012

PATIENT
  Age: 53 Year
  Sex: Female

DRUGS (2)
  1. AZO [Concomitant]
     Active Substance: PHENAZOPYRIDINE HYDROCHLORIDE
     Indication: PROPHYLAXIS
  2. LEMTRADA [Suspect]
     Active Substance: ALEMTUZUMAB
     Indication: MULTIPLE SCLEROSIS
     Route: 041
     Dates: start: 20150727, end: 20150731

REACTIONS (21)
  - Abasia [Not Recovered/Not Resolved]
  - Rash [Recovered/Resolved]
  - Feeling cold [Not Recovered/Not Resolved]
  - Ulcer [Unknown]
  - Fatigue [Not Recovered/Not Resolved]
  - Therapeutic response decreased [Unknown]
  - Muscular weakness [Recovering/Resolving]
  - Limb discomfort [Unknown]
  - Spinal cord disorder [Unknown]
  - Feeling abnormal [Unknown]
  - Ill-defined disorder [Unknown]
  - Decreased appetite [Unknown]
  - Dry skin [Unknown]
  - Pyrexia [Recovered/Resolved]
  - Muscle spasms [Not Recovered/Not Resolved]
  - Condition aggravated [Unknown]
  - Dysstasia [Unknown]
  - Musculoskeletal stiffness [Unknown]
  - Burning sensation [Unknown]
  - Pain [Unknown]
  - Erythema [Unknown]

NARRATIVE: CASE EVENT DATE: 2015
